FAERS Safety Report 11923367 (Version 4)
Quarter: 2016Q1

REPORT INFORMATION
  Report Type: Spontaneous
  Country: US (occurrence: US)
  Receive Date: 20160118
  Receipt Date: 20160202
  Transmission Date: 20160526
  Serious: Yes (Other)
  Sender: FDA-Public Use
  Company Number: US-AMGEN-USASP2016001742

PATIENT
  Age: 63 Year
  Sex: Female

DRUGS (3)
  1. LYRICA [Concomitant]
     Active Substance: PREGABALIN
     Dosage: UNK
  2. METHOTREXATE [Concomitant]
     Active Substance: METHOTREXATE
     Dosage: UNK
  3. ENBREL [Suspect]
     Active Substance: ETANERCEPT
     Indication: RHEUMATOID ARTHRITIS
     Dosage: 50 MG, QWK
     Route: 065
     Dates: start: 20151212

REACTIONS (16)
  - Polyneuropathy [Unknown]
  - Device use error [Unknown]
  - Palpitations [Unknown]
  - Injection site pain [Unknown]
  - Headache [Unknown]
  - Drug dose omission [Unknown]
  - Dry skin [Not Recovered/Not Resolved]
  - Arrhythmia [Unknown]
  - Impaired healing [Not Recovered/Not Resolved]
  - Rash macular [Unknown]
  - Skin swelling [Unknown]
  - Skin fissures [Not Recovered/Not Resolved]
  - Pruritus [Unknown]
  - Weight increased [Unknown]
  - Pain [Unknown]
  - Device issue [Unknown]
